FAERS Safety Report 7681318-6 (Version None)
Quarter: 2011Q3

REPORT INFORMATION
  Report Type: 
  Country: None (occurrence: None)
  Receive Date: 20110812
  Receipt Date: 20110811
  Transmission Date: 20111222
  Serious: Yes (Other)
  Sender: FDA-Public Use
  Company Number: AU-BAYER-2011-071199

PATIENT
  Sex: Male

DRUGS (8)
  1. LEVITRA [Suspect]
     Dosage: 20 MG, UNK
     Route: 048
     Dates: start: 20090101
  2. VITAMIN D [Concomitant]
  3. ZOCOR [Concomitant]
  4. IRON TABLETS [Concomitant]
  5. RAMIPRIL [Concomitant]
  6. BLOOD THINNER [Concomitant]
  7. MINAX [Concomitant]
  8. FISH OIL [Concomitant]

REACTIONS (1)
  - UROGENITAL HAEMORRHAGE [None]
